FAERS Safety Report 4796327-4 (Version None)
Quarter: 2005Q4

REPORT INFORMATION
  Report Type: 
  Country: None (occurrence: None)
  Receive Date: 20051007
  Receipt Date: 20050929
  Transmission Date: 20060501
  Serious: Yes (Death)
  Sender: FDA-Public Use
  Company Number: 2005-03671

PATIENT
  Age: 44 Year
  Sex: Female

DRUGS (5)
  1. FLUOROURACIL [Suspect]
     Indication: COLON CANCER
     Dosage: 2000 MG/M2 X 1, INTRAVENOUS; 1600 MG/M2 Q WEEK X 2, INTRAVENOUS
     Route: 042
     Dates: start: 20050101, end: 20050101
  2. FLUOROURACIL [Suspect]
     Indication: COLON CANCER
     Dosage: 2000 MG/M2 X 1, INTRAVENOUS; 1600 MG/M2 Q WEEK X 2, INTRAVENOUS
     Route: 042
     Dates: start: 20050101, end: 20050101
  3. IRINOTECAN (IRINOTECAN) [Suspect]
     Indication: COLON CANCER
     Dosage: 80 MG/M2 Q WEEK X 2, INTRAVENOUS; 64 MG/M2 X 1, INTRAVENOUS
     Route: 042
     Dates: start: 20050101, end: 20050101
  4. IRINOTECAN (IRINOTECAN) [Suspect]
     Indication: COLON CANCER
     Dosage: 80 MG/M2 Q WEEK X 2, INTRAVENOUS; 64 MG/M2 X 1, INTRAVENOUS
     Route: 042
     Dates: start: 20050101, end: 20050101
  5. LEUCOVORIN CALCIUM [Concomitant]

REACTIONS (1)
  - DRUG TOXICITY [None]
